FAERS Safety Report 25514977 (Version 3)
Quarter: 2025Q3

REPORT INFORMATION
  Report Type: Spontaneous
  Country: JP (occurrence: JP)
  Receive Date: 20250703
  Receipt Date: 20250729
  Transmission Date: 20251020
  Serious: Yes (Hospitalization, Other)
  Sender: GLAXOSMITHKLINE
  Company Number: JP-GSKNCCC-Case-02413579_AE-100327

PATIENT

DRUGS (1)
  1. MOMELOTINIB [Suspect]
     Active Substance: MOMELOTINIB
     Indication: Myelofibrosis

REACTIONS (5)
  - Cytokine storm [Unknown]
  - Cytokine release syndrome [Unknown]
  - Condition aggravated [Unknown]
  - Infection [Unknown]
  - Hypophagia [Recovering/Resolving]
